FAERS Safety Report 8212582-2 (Version None)
Quarter: 2012Q1

REPORT INFORMATION
  Report Type: 
  Country: None (occurrence: None)
  Receive Date: 20120315
  Receipt Date: 20120313
  Transmission Date: 20120608
  Serious: Yes (Hospitalization)
  Sender: FDA-Public Use
  Company Number: US-FRI-1000028433

PATIENT
  Age: 41 Year
  Sex: Female

DRUGS (17)
  1. SAVELLA [Suspect]
     Dosage: 200 MG
     Route: 048
  2. METOPROLOL SUCCINATE [Concomitant]
     Indication: ATRIAL FIBRILLATION
     Dosage: 50 MG
     Route: 048
  3. TRAZODONE HCL [Concomitant]
     Indication: INSOMNIA
     Dosage: 37.5 MG
     Route: 048
  4. PERCOCET [Concomitant]
     Indication: PAIN
     Dosage: 10/325 MG 1-2 TABS EVERY 6 HRS AS NEEDED
     Route: 048
  5. TRILIPIX [Concomitant]
     Indication: BLOOD CHOLESTEROL INCREASED
     Dosage: 135 MG
     Route: 048
  6. XANAX [Concomitant]
     Indication: ANXIETY
     Dosage: 2 MG AS NEEDED
     Route: 048
  7. SAVELLA [Suspect]
     Dosage: 25 MG
     Route: 048
     Dates: start: 20090101, end: 20090101
  8. PROTONIX [Concomitant]
     Indication: GASTROOESOPHAGEAL REFLUX DISEASE
     Dosage: 80 MG
     Route: 048
  9. MIRAPEX [Concomitant]
     Indication: RESTLESS LEGS SYNDROME
     Dosage: 0.25 MG
     Route: 048
  10. SAVELLA [Suspect]
     Dosage: 50 MG
     Route: 048
     Dates: start: 20090101, end: 20090101
  11. SOMA [Concomitant]
     Indication: PAIN
     Dosage: 350 MG AS NEEDED
     Route: 048
  12. CYMBALTA [Concomitant]
     Indication: DEPRESSION
     Dosage: 60 MG
     Route: 048
  13. CYMBALTA [Concomitant]
     Indication: FIBROMYALGIA
  14. SAVELLA [Suspect]
     Indication: FIBROMYALGIA
     Dosage: 12.5 MG
     Route: 048
     Dates: start: 20090101, end: 20090101
  15. SAVELLA [Suspect]
     Dosage: 100 MG
     Route: 048
     Dates: start: 20090101
  16. TESSALON [Concomitant]
     Indication: COUGH
     Dosage: 200 MG AS NEEDED
     Route: 048
  17. ADDERALL 5 [Concomitant]
     Indication: NARCOLEPSY
     Dosage: 15-20 MG DAILY
     Route: 048

REACTIONS (3)
  - NYSTAGMUS [None]
  - HYPONATRAEMIA [None]
  - VERTIGO [None]
